FAERS Safety Report 21517870 (Version 2)
Quarter: 2022Q4

REPORT INFORMATION
  Report Type: Report from Study
  Country: US (occurrence: US)
  Receive Date: 20221028
  Receipt Date: 20221031
  Transmission Date: 20230112
  Serious: Yes (Hospitalization, Other)
  Sender: FDA-Public Use
  Company Number: US-NOVARTISPH-NVSC2022US238758

PATIENT
  Age: 30 Year
  Sex: Female

DRUGS (1)
  1. RYDAPT [Suspect]
     Active Substance: MIDOSTAURIN
     Indication: Acute myeloid leukaemia
     Dosage: UNK
     Route: 065
     Dates: start: 202201

REACTIONS (7)
  - Central nervous system fungal infection [Recovering/Resolving]
  - Clostridium difficile infection [Recovering/Resolving]
  - Renal failure [Recovering/Resolving]
  - Blindness unilateral [Recovering/Resolving]
  - Neutropenic sepsis [Recovering/Resolving]
  - Platelet count decreased [Recovering/Resolving]
  - Fatigue [Recovering/Resolving]

NARRATIVE: CASE EVENT DATE: 20220301
